FAERS Safety Report 6929669-4 (Version None)
Quarter: 2010Q3

REPORT INFORMATION
  Report Type: 
  Country: None (occurrence: None)
  Receive Date: 20100813
  Receipt Date: 20100803
  Transmission Date: 20110219
  Serious: Yes (Other)
  Sender: FDA-Public Use
  Company Number: 015147

PATIENT
  Sex: Male
  Weight: 90.3 kg

DRUGS (3)
  1. CIMZIA [Suspect]
     Indication: CROHN'S DISEASE
     Dosage: SUBCUTANEOUS
     Route: 058
     Dates: start: 20091202
  2. LORTAB [Concomitant]
  3. PANTOPRAZOLE [Concomitant]

REACTIONS (7)
  - DRUG INEFFECTIVE [None]
  - FAECES DISCOLOURED [None]
  - HAEMORRHAGE [None]
  - INFLAMMATION [None]
  - MUSCLE SPASMS [None]
  - NAUSEA [None]
  - OESOPHAGEAL DISORDER [None]
